FAERS Safety Report 22592332 (Version 1)
Quarter: 2023Q2

REPORT INFORMATION
  Report Type: Other
  Country: CN (occurrence: None)
  Receive Date: 20230613
  Receipt Date: 20230613
  Transmission Date: 20230721
  Serious: Yes (Death, Other)
  Sender: FDA-Public Use
  Company Number: CN-ROCHE-3364806

PATIENT

DRUGS (5)
  1. BEVACIZUMAB [Suspect]
     Active Substance: BEVACIZUMAB
     Indication: Product used for unknown indication
     Dosage: 5 MG/KG-1
     Route: 034
  2. RITUXIMAB [Suspect]
     Active Substance: RITUXIMAB
     Indication: Product used for unknown indication
     Route: 065
  3. TRASTUZUMAB [Suspect]
     Active Substance: TRASTUZUMAB
     Indication: Product used for unknown indication
     Route: 065
  4. PERTUZUMAB [Suspect]
     Active Substance: PERTUZUMAB
     Indication: Product used for unknown indication
     Route: 065
  5. CETUXIMAB [Suspect]
     Active Substance: CETUXIMAB
     Indication: Product used for unknown indication
     Route: 065

REACTIONS (23)
  - Large intestine perforation [Fatal]
  - Myelosuppression [Unknown]
  - Hyperpyrexia [Unknown]
  - Left ventricular failure [Unknown]
  - Blood disorder [Unknown]
  - Autoimmune lymphoproliferative syndrome [Unknown]
  - Diarrhoea [Unknown]
  - Skin toxicity [Unknown]
  - Hypertension [Unknown]
  - Chills [Unknown]
  - Hypersensitivity [Unknown]
  - Blood pressure increased [Unknown]
  - Rash [Unknown]
  - Nausea [Unknown]
  - Vomiting [Unknown]
  - Hepatic function abnormal [Unknown]
  - Palpitations [Unknown]
  - Arrhythmia [Unknown]
  - Blood pressure decreased [Unknown]
  - Thrombosis [Unknown]
  - Flushing [Unknown]
  - Dyspnoea [Unknown]
  - Off label use [Unknown]
